FAERS Safety Report 15233880 (Version 1)
Quarter: 2018Q3

REPORT INFORMATION
  Report Type: Spontaneous
  Country: DE (occurrence: DE)
  Receive Date: 20180802
  Receipt Date: 20180802
  Transmission Date: 20181010
  Serious: Yes (Other)
  Sender: FDA-Public Use
  Company Number: PHHY2018DE061935

PATIENT
  Age: 49 Year
  Sex: Female
  Weight: 65 kg

DRUGS (1)
  1. AMOXICILLIN. [Suspect]
     Active Substance: AMOXICILLIN
     Indication: CYSTITIS NONINFECTIVE
     Dosage: 1 UG/LIT (3 X TGL 1 TBL)
     Route: 048
     Dates: start: 20160923

REACTIONS (8)
  - Muscle rupture [Unknown]
  - Muscular weakness [Not Recovered/Not Resolved]
  - Muscle twitching [Not Recovered/Not Resolved]
  - Sensory disturbance [Unknown]
  - Depressed mood [Recovering/Resolving]
  - Arthralgia [Unknown]
  - General physical condition abnormal [Not Recovered/Not Resolved]
  - Anxiety [Recovering/Resolving]
